FAERS Safety Report 18232580 (Version 2)
Quarter: 2020Q3

REPORT INFORMATION
  Report Type: Spontaneous
  Country: US (occurrence: US)
  Receive Date: 20200904
  Receipt Date: 20200908
  Transmission Date: 20201103
  Serious: No
  Sender: FDA-Public Use
  Company Number: US-PFIZER INC-2020342812

PATIENT
  Age: 70 Year
  Sex: Male
  Weight: 86.18 kg

DRUGS (2)
  1. HYDROCORTISONE. [Suspect]
     Active Substance: HYDROCORTISONE
     Indication: ADRENAL INSUFFICIENCY
     Dosage: 25 MG, 2X/DAY (FOUR 5 MG TABLETS FOR A TOTAL DOSE OF 20 MG IN MORNING AND ONE 5MG IN EVENING)
     Dates: start: 202004
  2. HYDROCORTISONE. [Suspect]
     Active Substance: HYDROCORTISONE
     Dosage: 20 MG, 2X/DAY (15 MG IN MORNING AND 5 MG IN AFTERNOON)

REACTIONS (8)
  - Malaise [Recovered/Resolved]
  - Therapeutic product effect incomplete [Unknown]
  - Nausea [Recovered/Resolved]
  - Product measured potency issue [Unknown]
  - Vomiting [Recovered/Resolved]
  - Pyrexia [Recovered/Resolved]
  - Product contamination [Unknown]
  - Chills [Recovered/Resolved]

NARRATIVE: CASE EVENT DATE: 20200901
